FAERS Safety Report 4607436-4 (Version None)
Quarter: 2005Q1

REPORT INFORMATION
  Report Type: 
  Country: None (occurrence: None)
  Receive Date: 20050309
  Receipt Date: 20050303
  Transmission Date: 20050727
  Serious: Yes (Disabling)
  Sender: FDA-Public Use
  Company Number: TPG2005A00063

PATIENT
  Age: 75 Year
  Sex: Male

DRUGS (4)
  1. LEUPROLIDE ACETATE [Suspect]
     Indication: PROSTATE CANCER
     Dosage: 3.75 MG (3.75 MG, 1 IN 1 M), PER ORAL
     Route: 048
     Dates: start: 20040421
  2. RAMIPRIL [Concomitant]
  3. ACETYLSALICYLIC ACID SRT [Concomitant]
  4. CYPROTERONE ACETATE (CYPROTERONE ACETATE) [Concomitant]

REACTIONS (1)
  - RETINAL VEIN THROMBOSIS [None]
